FAERS Safety Report 18993674 (Version 1)
Quarter: 2021Q1

REPORT INFORMATION
  Report Type: Report from Study
  Country: US (occurrence: US)
  Receive Date: 20210310
  Receipt Date: 20210310
  Transmission Date: 20210420
  Serious: Yes (Other)
  Sender: FDA-Public Use
  Company Number: US-PFIZER INC-2021229198

PATIENT
  Age: 39 Year
  Sex: Female
  Weight: 63.49 kg

DRUGS (2)
  1. LYRICA [Suspect]
     Active Substance: PREGABALIN
     Dosage: UNK
  2. HUMIRA AC [Suspect]
     Active Substance: ADALIMUMAB
     Indication: RHEUMATOID ARTHRITIS
     Dosage: UNK
     Route: 058

REACTIONS (4)
  - Road traffic accident [Unknown]
  - Weight increased [Recovering/Resolving]
  - Craniocerebral injury [Unknown]
  - Injury [Unknown]

NARRATIVE: CASE EVENT DATE: 2008
